FAERS Safety Report 9713753 (Version 1)
Quarter: 2013Q4

REPORT INFORMATION
  Report Type: Spontaneous
  Country: NL (occurrence: NL)
  Receive Date: 20131126
  Receipt Date: 20131126
  Transmission Date: 20140711
  Serious: Yes (Hospitalization)
  Sender: FDA-Public Use
  Company Number: NL-MYLANLABS-2013S1026203

PATIENT
  Age: 50 Year
  Sex: Female

DRUGS (4)
  1. PAMIDRONIC ACID [Suspect]
     Route: 065
  2. CALCIUM CARBONATE [Suspect]
     Dosage: 3000 MG/DAY
     Route: 065
  3. DIHYDROTACHYSTEROL [Suspect]
     Dosage: 0.4 MG/DAY
     Route: 065
  4. HYDROCHLOROTHIAZIDE [Suspect]
     Route: 065

REACTIONS (1)
  - Hypocalcaemia [Recovering/Resolving]
